FAERS Safety Report 9135800 (Version 1)
Quarter: 2013Q1

REPORT INFORMATION
  Report Type: Spontaneous
  Country: DK (occurrence: None)
  Receive Date: 20130220
  Receipt Date: 20130220
  Transmission Date: 20140127
  Serious: Yes (Death)
  Sender: FDA-Public Use
  Company Number: 2013P1002240

PATIENT
  Age: 34 Year
  Sex: Male
  Weight: 90 kg

DRUGS (14)
  1. OXYCODONE [Suspect]
     Route: 051
     Dates: end: 201101
  2. VENLAFAXINE [Suspect]
     Dates: start: 200511, end: 200707
  3. ETHANOL [Suspect]
     Dates: end: 201101
  4. PREGABALIN [Concomitant]
  5. PANTOPRAZOLE [Concomitant]
  6. QUETIAPINE [Concomitant]
  7. SIMVASTATIN [Concomitant]
  8. INSULIN DETEMIR [Concomitant]
  9. PHENOXYMETHYLPENICILLIN [Concomitant]
  10. DIAZEPAM [Concomitant]
  11. NITRAZEPAM [Concomitant]
  12. HALOPERIDOL [Concomitant]
  13. ZOLPIDEM [Concomitant]
  14. ETODOLAC [Concomitant]

REACTIONS (1)
  - Toxicity to various agents [None]
